FAERS Safety Report 25009076 (Version 2)
Quarter: 2025Q1

REPORT INFORMATION
  Report Type: Spontaneous
  Country: US (occurrence: US)
  Receive Date: 20250225
  Receipt Date: 20250327
  Transmission Date: 20250409
  Serious: No
  Sender: TOLMAR
  Company Number: US-TOLMAR, INC.-25US056251

PATIENT
  Sex: Male

DRUGS (2)
  1. ELIGARD [Suspect]
     Active Substance: LEUPROLIDE ACETATE
     Indication: Prostate cancer
  2. ELIGARD [Suspect]
     Active Substance: LEUPROLIDE ACETATE

REACTIONS (3)
  - Intercepted product preparation error [Unknown]
  - Device leakage [Unknown]
  - Product packaging quantity issue [Unknown]
